FAERS Safety Report 18408991 (Version 1)
Quarter: 2020Q4

REPORT INFORMATION
  Report Type: Spontaneous
  Country: AT (occurrence: AT)
  Receive Date: 20201020
  Receipt Date: 20201020
  Transmission Date: 20210114
  Serious: Yes (Other)
  Sender: FDA-Public Use
  Company Number: AT-B.I. PHARMACEUTICALS,INC./RIDGEFIELD-2020-BI-054336

PATIENT
  Age: 55 Year
  Sex: Male

DRUGS (5)
  1. ROTIGOTINE [Suspect]
     Active Substance: ROTIGOTINE
     Indication: MULTIPLE SYSTEM ATROPHY
     Route: 062
  2. PRAMIPEXOLE. [Suspect]
     Active Substance: PRAMIPEXOLE
     Indication: MULTIPLE SYSTEM ATROPHY
     Dosage: DOSING AS A PART OF LEVODOPA EQUIVALENT DAILY DOSE (LEDD) OF 1479 MG WAS SCHEDULED.
     Route: 065
  3. RASAGILINE. [Concomitant]
     Active Substance: RASAGILINE
     Indication: MULTIPLE SYSTEM ATROPHY
     Route: 065
  4. CARBIDOPA;ENTACAPONE;LEVODOPA [Suspect]
     Active Substance: CARBIDOPA\ENTACAPONE\LEVODOPA
     Indication: MULTIPLE SYSTEM ATROPHY
     Dosage: DOSING AS A PART OF LEVODOPA EQUIVALENT DAILY DOSE (LEDD) OF 1479 MG WAS SCHEDULED.
     Route: 065
  5. TRAZODONE [Concomitant]
     Active Substance: TRAZODONE HYDROCHLORIDE
     Indication: RAPID EYE MOVEMENT SLEEP BEHAVIOUR DISORDER
     Route: 065

REACTIONS (1)
  - Therapy non-responder [Unknown]
